FAERS Safety Report 16290306 (Version 1)
Quarter: 2020Q3

REPORT INFORMATION
  Report Type: Spontaneous
  Country: AU (occurrence: AU)
  Receive Date: 20190509
  Receipt Date: 20190509
  Transmission Date: 20201104
  Serious: Yes (Other)
  Sender: FDA-Public Use
  Company Number: AU-SA-2019SA126528

PATIENT
  Age: 43 Year
  Sex: Female

DRUGS (6)
  1. VITAMIN D [ERGOCALCIFEROL] [Concomitant]
     Active Substance: ERGOCALCIFEROL
     Dosage: UNK
     Dates: start: 2018
  2. DEPO?PROVERA [Concomitant]
     Active Substance: MEDROXYPROGESTERONE ACETATE
  3. FINGOLIMOD. [Suspect]
     Active Substance: FINGOLIMOD
     Indication: RELAPSING-REMITTING MULTIPLE SCLEROSIS
     Dosage: UNK
     Route: 048
     Dates: start: 2011
  4. FINGOLIMOD. [Suspect]
     Active Substance: FINGOLIMOD
     Dosage: UNK
     Route: 048
     Dates: start: 20120110
  5. IRBESARTAN. [Suspect]
     Active Substance: IRBESARTAN
  6. ENDEP [Concomitant]
     Active Substance: AMITRIPTYLINE HYDROCHLORIDE
     Dosage: 25 MG, QD
     Dates: start: 20120423

REACTIONS (1)
  - Basal cell carcinoma [Unknown]
